FAERS Safety Report 5515097-5 (Version None)
Quarter: 2007Q4

REPORT INFORMATION
  Report Type: 
  Country: None (occurrence: None)
  Receive Date: 20071113
  Receipt Date: 20070102
  Transmission Date: 20080405
  Serious: No
  Sender: FDA-Public Use
  Company Number: A0633243A

PATIENT
  Age: 74 Year
  Sex: Male

DRUGS (10)
  1. COREG [Suspect]
     Indication: HYPERTENSION
     Dosage: 6.25MG TWICE PER DAY
     Route: 048
  2. BENICAR [Concomitant]
  3. PLAVIX [Concomitant]
  4. VYTORIN [Concomitant]
  5. AMARYL [Concomitant]
  6. NPH INSULIN [Concomitant]
  7. DIGOXIN [Concomitant]
  8. FOLIC ACID [Concomitant]
  9. SYNTHROID [Concomitant]
  10. SLOW MAG [Concomitant]

REACTIONS (4)
  - DYSPNOEA [None]
  - FATIGUE [None]
  - FEELING ABNORMAL [None]
  - WEIGHT INCREASED [None]
